FAERS Safety Report 15568801 (Version 1)
Quarter: 2018Q4

REPORT INFORMATION
  Report Type: Spontaneous
  Country: US (occurrence: US)
  Receive Date: 20181031
  Receipt Date: 20181031
  Transmission Date: 20190205
  Serious: No
  Sender: FDA-Public Use
  Company Number: US-ASTRAZENECA-2018SF30026

PATIENT
  Sex: Male

DRUGS (1)
  1. FASENRA [Suspect]
     Active Substance: BENRALIZUMAB
     Indication: ASTHMA
     Dosage: 30 MG, EVERY FOUR WEEKS FOR THE FIRST THREE DOSES, THEN EVERY EIGHT WEEKS THEREAFTER
     Route: 058
     Dates: start: 2018

REACTIONS (1)
  - Asthma [Unknown]

NARRATIVE: CASE EVENT DATE: 2018
